FAERS Safety Report 8919116 (Version 1)
Quarter: 2012Q4

REPORT INFORMATION
  Report Type: Spontaneous
  Country: AU (occurrence: None)
  Receive Date: 20121114
  Receipt Date: 20121114
  Transmission Date: 20130627
  Serious: Yes (Other)
  Sender: FDA-Public Use
  Company Number: AU-1195213

PATIENT
  Sex: Male

DRUGS (2)
  1. SYSTANE EYEDROPS [Suspect]
     Indication: DRY EYE
     Dosage: 1 DF QID OS OPHTHALMIC)
     Route: 047
  2. SYSTANE EYEDROPS [Suspect]
     Indication: DRY EYE
     Dosage: 1 DF QID OD OPHTHALMIC
     Route: 047

REACTIONS (3)
  - Vitreous floaters [None]
  - Photopsia [None]
  - Retinal detachment [None]
